FAERS Safety Report 11113811 (Version 2)
Quarter: 2016Q4

REPORT INFORMATION
  Report Type: Spontaneous
  Country: US (occurrence: US)
  Receive Date: 20150514
  Receipt Date: 20161110
  Transmission Date: 20170206
  Serious: Yes (Hospitalization, Other)
  Sender: FDA-Public Use
  Company Number: US-ELI_LILLY_AND_COMPANY-US201505003250

PATIENT
  Age: 55 Year
  Sex: Female
  Weight: 119.27 kg

DRUGS (2)
  1. CYMBALTA [Suspect]
     Active Substance: DULOXETINE HYDROCHLORIDE
     Indication: PAIN
     Dosage: 20 MG, BID
     Route: 048
     Dates: start: 20120315, end: 201504
  2. CYMBALTA [Suspect]
     Active Substance: DULOXETINE HYDROCHLORIDE
     Indication: DEPRESSION
     Dosage: 60 MG, EACH MORNING
     Route: 065
     Dates: start: 2009, end: 201203

REACTIONS (26)
  - Depression [Unknown]
  - Diarrhoea [Unknown]
  - Dizziness [Unknown]
  - Lethargy [Unknown]
  - Tinnitus [Unknown]
  - Major depression [Unknown]
  - Nightmare [Unknown]
  - Mood swings [Unknown]
  - Headache [Unknown]
  - Irritability [Unknown]
  - Agitation [Unknown]
  - Affect lability [Unknown]
  - Back pain [Unknown]
  - Nausea [Unknown]
  - Fatigue [Unknown]
  - Dysphoria [Unknown]
  - Suicidal ideation [Unknown]
  - Weight increased [Unknown]
  - Drug withdrawal syndrome [Unknown]
  - Paraesthesia [Unknown]
  - Vertigo [Unknown]
  - Anxiety [Unknown]
  - Decreased appetite [Unknown]
  - Sleep disorder [Unknown]
  - Confusional state [Unknown]
  - Insomnia [Unknown]

NARRATIVE: CASE EVENT DATE: 201505
